FAERS Safety Report 9410425 (Version 1)
Quarter: 2013Q3

REPORT INFORMATION
  Report Type: Report from Study
  Country: JP (occurrence: JP)
  Receive Date: 20130719
  Receipt Date: 20130719
  Transmission Date: 20140515
  Serious: Yes (Hospitalization)
  Sender: FDA-Public Use
  Company Number: JP-GLAXOSMITHKLINE-B0907216A

PATIENT
  Age: 49 Year
  Sex: Male

DRUGS (1)
  1. GSK2118436 [Suspect]
     Indication: MALIGNANT MELANOMA
     Dosage: 300MG PER DAY
     Route: 048
     Dates: start: 20130529

REACTIONS (1)
  - Convulsion [Unknown]
